FAERS Safety Report 4294946-5 (Version None)
Quarter: 2004Q1

REPORT INFORMATION
  Report Type: 
  Country: None (occurrence: None)
  Receive Date: 20040216
  Receipt Date: 20030311
  Transmission Date: 20041129
  Serious: No
  Sender: FDA-Public Use
  Company Number: US-GLAXOSMITHKLINE-A0399864A

PATIENT
  Age: 70 Year
  Sex: Female

DRUGS (3)
  1. LAMICTAL [Suspect]
     Dosage: 25MG TWICE PER DAY
     Route: 048
     Dates: start: 20030310
  2. TEGRETOL [Concomitant]
  3. CARBACHOL [Concomitant]

REACTIONS (6)
  - DIPLOPIA [None]
  - EYE IRRITATION [None]
  - EYE REDNESS [None]
  - HYPERSENSITIVITY [None]
  - INSOMNIA [None]
  - VISION BLURRED [None]
